FAERS Safety Report 6371283-6 (Version None)
Quarter: 2009Q3

REPORT INFORMATION
  Report Type: 
  Country: None (occurrence: None)
  Receive Date: 20090923
  Receipt Date: 20090921
  Transmission Date: 20100115
  Serious: Yes (Death, Hospitalization, Other)
  Sender: FDA-Public Use
  Company Number: ES-BRISTOL-MYERS SQUIBB COMPANY-14778120

PATIENT
  Age: 49 Year
  Sex: Male

DRUGS (5)
  1. CISPLATIN [Suspect]
     Indication: SMALL CELL LUNG CANCER STAGE UNSPECIFIED
     Dosage: DAY 2
  2. CYCLOPHOSPHAMIDE [Suspect]
     Indication: SMALL CELL LUNG CANCER STAGE UNSPECIFIED
     Dosage: ON DAYS 1-3
  3. ETOPOSIDE [Suspect]
     Indication: SMALL CELL LUNG CANCER STAGE UNSPECIFIED
     Dosage: DAYS 1-3
  4. VINCRISTINE SULFATE [Suspect]
     Indication: SMALL CELL LUNG CANCER STAGE UNSPECIFIED
     Dosage: DAY 3
  5. ADRIAMYCIN PFS [Suspect]
     Indication: SMALL CELL LUNG CANCER STAGE UNSPECIFIED
     Dosage: DAY 1

REACTIONS (5)
  - ACUTE HEPATIC FAILURE [None]
  - FEBRILE NEUTROPENIA [None]
  - HEPATITIS B VIRUS TEST [None]
  - HEPATITIS CHOLESTATIC [None]
  - THROMBOCYTOPENIA [None]
